FAERS Safety Report 6877351-4 (Version None)
Quarter: 2010Q3

REPORT INFORMATION
  Report Type: 
  Country: None (occurrence: None)
  Receive Date: 20100727
  Receipt Date: 20090929
  Transmission Date: 20110219
  Serious: No
  Sender: FDA-Public Use
  Company Number: US-ABBOTT-09P-163-0600313-00

PATIENT
  Sex: Female
  Weight: 64.468 kg

DRUGS (2)
  1. SYNTHROID [Suspect]
     Indication: HYPOTHYROIDISM
     Route: 048
     Dates: start: 19790101
  2. ESTRACE [Concomitant]
     Indication: MENOPAUSE

REACTIONS (5)
  - CHEST PAIN [None]
  - HEART RATE INCREASED [None]
  - NERVOUSNESS [None]
  - TREMOR [None]
  - WEIGHT DECREASED [None]
